FAERS Safety Report 12456060 (Version 1)
Quarter: 2016Q2

REPORT INFORMATION
  Report Type: Spontaneous
  Country: CA (occurrence: CA)
  Receive Date: 20160610
  Receipt Date: 20160610
  Transmission Date: 20160815
  Serious: Yes (Other)
  Sender: FDA-Public Use
  Company Number: CA-AMGEN-CANSP2016073585

PATIENT
  Age: 60 Year
  Sex: Female

DRUGS (5)
  1. METHOTREXATE [Suspect]
     Active Substance: METHOTREXATE
     Indication: RHEUMATOID ARTHRITIS
     Dosage: MORE THAN 20MG EVERY WEEK
     Route: 065
     Dates: end: 2005
  2. HYDROXYCHLOROQUINE [Suspect]
     Active Substance: HYDROXYCHLOROQUINE
     Indication: PRODUCT USED FOR UNKNOWN INDICATION
     Dosage: UNK
     Route: 065
     Dates: end: 2005
  3. ENBREL [Suspect]
     Active Substance: ETANERCEPT
     Indication: RHEUMATOID ARTHRITIS
     Dosage: UNK
     Route: 058
  4. SULFASALAZINE. [Suspect]
     Active Substance: SULFASALAZINE
     Indication: RHEUMATOID ARTHRITIS
     Dosage: 1 G, BID
     Route: 048
  5. LEFLUNOMIDE. [Suspect]
     Active Substance: LEFLUNOMIDE
     Indication: PRODUCT USED FOR UNKNOWN INDICATION
     Dosage: 20 MG, QD
     Route: 065

REACTIONS (12)
  - Drug effect incomplete [Unknown]
  - C-reactive protein increased [Unknown]
  - Synovitis [Unknown]
  - Red blood cell sedimentation rate increased [Unknown]
  - X-ray abnormal [Unknown]
  - Retinitis [Unknown]
  - Drug intolerance [Unknown]
  - Drug ineffective [Unknown]
  - Mobility decreased [Recovering/Resolving]
  - Nausea [Unknown]
  - Rheumatoid arthritis [Recovering/Resolving]
  - Crohn^s disease [Unknown]

NARRATIVE: CASE EVENT DATE: 2013
